FAERS Safety Report 24812797 (Version 1)
Quarter: 2025Q1

REPORT INFORMATION
  Report Type: Spontaneous
  Country: JP (occurrence: JP)
  Receive Date: 20250107
  Receipt Date: 20250107
  Transmission Date: 20250408
  Serious: Yes (Other)
  Sender: Haleon PLC
  Company Number: JP-JOHNSON + JOHNSON CONSUMER SERVICES EAME-20241208569

PATIENT

DRUGS (1)
  1. NICORETTE [Suspect]
     Active Substance: NICOTINE
     Indication: Smoking cessation therapy
     Route: 048

REACTIONS (2)
  - Incorrect product administration duration [Unknown]
  - Drug dependence [Not Recovered/Not Resolved]
